FAERS Safety Report 17021032 (Version 1)
Quarter: 2019Q4

REPORT INFORMATION
  Report Type: Report from Study
  Country: CA (occurrence: CA)
  Receive Date: 20191112
  Receipt Date: 20191112
  Transmission Date: 20200122
  Serious: Yes (Other)
  Sender: FDA-Public Use
  Company Number: CA-PFIZER INC-2019484443

PATIENT
  Age: 47 Year
  Sex: Female

DRUGS (13)
  1. METHOTREXATE SODIUM. [Suspect]
     Active Substance: METHOTREXATE SODIUM
     Route: 065
  2. VOLTAREN [DICLOFENAC] [Suspect]
     Active Substance: DICLOFENAC SODIUM
     Route: 065
  3. ESOMEPRAZOLE MAGNESIUM/NAPROXEN [Concomitant]
     Route: 065
  4. ARTHROTEC [Concomitant]
     Active Substance: DICLOFENAC SODIUM\MISOPROSTOL
     Route: 065
  5. ENBREL [Concomitant]
     Active Substance: ETANERCEPT
     Route: 065
  6. HUMIRA [Concomitant]
     Active Substance: ADALIMUMAB
  7. SULFASALAZINE. [Concomitant]
     Active Substance: SULFASALAZINE
     Route: 065
  8. COSENTYX [Suspect]
     Active Substance: SECUKINUMAB
     Indication: ANKYLOSING SPONDYLITIS
     Dosage: 150 MG, MONTHLY
     Route: 058
  9. VIOXX [Concomitant]
     Active Substance: ROFECOXIB
     Route: 065
  10. COSENTYX [Suspect]
     Active Substance: SECUKINUMAB
     Indication: ANKYLOSING SPONDYLITIS
     Dosage: 150 MG, MONTHLY
     Route: 058
  11. CELEBREX [Concomitant]
     Active Substance: CELECOXIB
     Route: 065
  12. IBUPROFEN. [Concomitant]
     Active Substance: IBUPROFEN
     Route: 065
  13. MELOXICAM. [Concomitant]
     Active Substance: MELOXICAM
     Indication: GASTROINTESTINAL DISORDER
     Route: 065

REACTIONS (6)
  - Back pain [Unknown]
  - Malaise [Unknown]
  - Gastritis [Unknown]
  - Pain [Unknown]
  - Pain in extremity [Unknown]
  - Pneumonia [Unknown]
